FAERS Safety Report 10039395 (Version 2)
Quarter: 2014Q1

REPORT INFORMATION
  Report Type: Spontaneous
  Country: DE (occurrence: DE)
  Receive Date: 20140326
  Receipt Date: 20140326
  Transmission Date: 20141002
  Serious: Yes (Other)
  Sender: FDA-Public Use
  Company Number: PHHY2014DE021800

PATIENT
  Age: 17 Year
  Sex: Male
  Weight: 59.7 kg

DRUGS (2)
  1. RITALIN LA [Suspect]
     Indication: ATTENTION DEFICIT/HYPERACTIVITY DISORDER
     Dosage: 40 MG, DAILY (OF A 20 MG CAPSULE)
     Route: 048
     Dates: start: 20131023
  2. RITALIN LA [Suspect]
     Dosage: 20 MG, DAILY (OF A 10 MG CAPSULE)
     Route: 048
     Dates: start: 20131023

REACTIONS (5)
  - Musculoskeletal stiffness [Not Recovered/Not Resolved]
  - Hypoaesthesia [Not Recovered/Not Resolved]
  - Skin discolouration [Not Recovered/Not Resolved]
  - Peripheral coldness [Not Recovered/Not Resolved]
  - Drug level decreased [Unknown]
